FAERS Safety Report 6739314-9 (Version None)
Quarter: 2010Q2

REPORT INFORMATION
  Report Type: 
  Country: None (occurrence: None)
  Receive Date: 20100521
  Receipt Date: 20100514
  Transmission Date: 20101027
  Serious: Yes (Other)
  Sender: FDA-Public Use
  Company Number: ESP10000060

PATIENT
  Age: 62 Year
  Sex: Female

DRUGS (4)
  1. RISEDRONATE SODIUM [Suspect]
     Indication: OSTEOPOROSIS POSTMENOPAUSAL
     Dosage: 75 MG, 2 CD/ MONTH, ORAL
     Route: 048
     Dates: start: 20100201, end: 20100301
  2. ACETAMINOPHEN [Concomitant]
  3. COZAAR [Concomitant]
  4. SIMVASTATINA (SIMVASTATIN) [Concomitant]

REACTIONS (5)
  - BALANCE DISORDER [None]
  - ERYTHEMA [None]
  - MALAISE [None]
  - PALPITATIONS [None]
  - VERTIGO [None]
